FAERS Safety Report 10155769 (Version 1)
Quarter: 2014Q2

REPORT INFORMATION
  Report Type: Spontaneous
  Country: IT (occurrence: IT)
  Receive Date: 20140506
  Receipt Date: 20140506
  Transmission Date: 20141212
  Serious: Yes (Death, Hospitalization, Other)
  Sender: FDA-Public Use
  Company Number: PHHY2014IT053575

PATIENT
  Age: 50 Year
  Sex: Male

DRUGS (3)
  1. EVEROLIMUS [Suspect]
     Indication: IMMUNOSUPPRESSION
  2. SORAFENIB [Suspect]
     Indication: HEPATOCELLULAR CARCINOMA
  3. SORAFENIB [Suspect]
     Dosage: 400 MG, DAILY (REDUCED)

REACTIONS (4)
  - Death [Fatal]
  - Diarrhoea [Unknown]
  - Coma [Unknown]
  - Condition aggravated [Unknown]
